FAERS Safety Report 11702347 (Version 1)
Quarter: 2015Q4

REPORT INFORMATION
  Report Type: Report from Study
  Country: IT (occurrence: IT)
  Receive Date: 20151105
  Receipt Date: 20151105
  Transmission Date: 20160304
  Serious: Yes (Other)
  Sender: FDA-Public Use
  Company Number: IT-TEVA-605625ACC

PATIENT
  Age: 60 Year
  Sex: Male

DRUGS (3)
  1. INTERFERON ALFA-2B PEGYLATED [Suspect]
     Active Substance: INTERFERON ALFA-2B
     Indication: CHRONIC HEPATITIS C
     Dates: start: 20150117
  2. RIBAVIRIN. [Suspect]
     Active Substance: RIBAVIRIN
     Indication: CHRONIC HEPATITIS C
     Dosage: 1000 MILLIGRAM DAILY;
     Dates: start: 20150117
  3. SOFOSBUVIR [Suspect]
     Active Substance: SOFOSBUVIR
     Indication: CHRONIC HEPATITIS C
     Dates: start: 20150117

REACTIONS (3)
  - Leukopenia [Unknown]
  - Asthenia [Unknown]
  - Anaemia [Unknown]

NARRATIVE: CASE EVENT DATE: 20150211
